FAERS Safety Report 7912913-4 (Version None)
Quarter: 2011Q4

REPORT INFORMATION
  Report Type: 
  Country: None (occurrence: None)
  Receive Date: 20111114
  Receipt Date: 20111108
  Transmission Date: 20120403
  Serious: Yes (Hospitalization)
  Sender: FDA-Public Use
  Company Number: JP-ROCHE-773669

PATIENT
  Sex: Female

DRUGS (26)
  1. ACTEMRA [Suspect]
     Route: 041
     Dates: start: 20110204, end: 20110204
  2. DEXAMETHASONE [Concomitant]
     Route: 041
     Dates: start: 20110109, end: 20110203
  3. DIAMOX SRC [Concomitant]
     Dosage: DOSE FORM: PERORAL AGENT
     Route: 050
  4. ONEALFA [Concomitant]
     Dosage: DOSE FORM: PERORAL AGENT
     Route: 048
  5. PREDNISOLONE [Concomitant]
     Dosage: DOSE FORM: PERORAL AGENT
     Route: 048
     Dates: start: 20110330, end: 20110404
  6. FAMOTIDINE [Concomitant]
     Dosage: DOSE FORM: PERORAL AGENT
     Route: 048
  7. DIPIVEFRIN HCL [Concomitant]
     Dosage: DOSAGE UNCERTAIN
     Route: 047
  8. FERROUS CITRATE [Concomitant]
     Dosage: DOSE FORM: PERORAL AGENT
     Route: 048
  9. ACTEMRA [Suspect]
     Route: 041
     Dates: start: 20110210, end: 20110404
  10. DEXAMETHASONE [Concomitant]
     Route: 041
     Dates: start: 20110204, end: 20110228
  11. IBRUPROFEN [Concomitant]
     Dosage: DOSE FORM: PERORAL AGENT
     Route: 048
  12. POTASSIUM GLUCONATE TAB [Concomitant]
     Dosage: DOSE FORM: PERORAL AGENT
     Route: 048
  13. POLARAMINE [Concomitant]
     Route: 048
     Dates: start: 20110216, end: 20110219
  14. ACTEMRA [Suspect]
     Route: 041
     Dates: start: 20110411, end: 20110418
  15. PREDNISOLONE [Concomitant]
     Dosage: DOSE FORM: PERORAL AGENT
     Route: 048
     Dates: start: 20110301, end: 20110316
  16. PREDNISOLONE [Concomitant]
     Dosage: DOSE FORM: PERORAL AGENT
     Route: 048
     Dates: start: 20110326, end: 20110329
  17. LATANOPROST [Concomitant]
     Dosage: DOSAGE UNCERTAIN
     Route: 047
  18. TRUSOPT [Concomitant]
     Dosage: DOSAGE UNCERTAIN
     Route: 047
  19. PREDNISOLONE [Concomitant]
     Dosage: DOSE FORM: PERORAL AGENT
     Route: 048
     Dates: start: 20110317, end: 20110325
  20. PREDNISOLONE [Concomitant]
     Dosage: DOSE FORM: PERORAL AGENT
     Route: 048
     Dates: start: 20110405, end: 20110411
  21. CARTEOLOL HYDROCHLORIDE [Concomitant]
     Dosage: DOSAGE UNCERTAIN
     Route: 047
  22. MIYA BM [Concomitant]
     Dosage: DOSE FORM: PERORAL AGENT
     Route: 048
  23. PREDNISOLONE [Concomitant]
     Dosage: DOSE FORM: PERORAL AGENT
     Route: 048
  24. ACTONEL [Concomitant]
     Route: 048
  25. ACTEMRA [Suspect]
     Indication: JUVENILE ARTHRITIS
     Route: 041
     Dates: start: 20110121, end: 20110128
  26. PREDNISOLONE [Concomitant]
     Dosage: DOSE FORM: PERORAL AGENT
     Route: 048
     Dates: start: 20110412, end: 20110418

REACTIONS (2)
  - INFUSION RELATED REACTION [None]
  - C-REACTIVE PROTEIN INCREASED [None]
